FAERS Safety Report 4350868-2 (Version None)
Quarter: 2004Q2

REPORT INFORMATION
  Report Type: 
  Country: None (occurrence: None)
  Receive Date: 20040428
  Receipt Date: 20040415
  Transmission Date: 20050107
  Serious: Yes (Other)
  Sender: FDA-Public Use
  Company Number: 2004009703

PATIENT
  Age: 76 Year
  Sex: Female
  Weight: 56.246 kg

DRUGS (9)
  1. GLUCOTROL [Suspect]
     Indication: DIABETES MELLITUS
     Dates: end: 20030101
  2. GLUCOTROL XL [Suspect]
     Indication: DIABETES MELLITUS
     Dosage: 15 MG DAILY, ORAL
     Route: 048
  3. GLIPIZIDE [Suspect]
     Indication: DIABETES MELLITUS
     Dosage: 15 MG DAILY, ORAL
     Route: 048
     Dates: start: 20040201
  4. GLIPIZIDE [Suspect]
     Indication: DIABETES MELLITUS
  5. PIOGLITAZONE HCL [Concomitant]
  6. DIGOXIN [Concomitant]
  7. LOSARTAN POTASSIUM [Concomitant]
  8. INSULIN GLARGINE (INSULIN GLARGINE) [Concomitant]
  9. ACETYLSALICYLIC ACID SRT [Concomitant]

REACTIONS (14)
  - BACK PAIN [None]
  - BLOOD GLUCOSE FLUCTUATION [None]
  - BLOOD GLUCOSE INCREASED [None]
  - BLOOD TRIGLYCERIDES DECREASED [None]
  - BLOOD TRIGLYCERIDES INCREASED [None]
  - CONSTIPATION [None]
  - DIVERTICULITIS [None]
  - DRUG INEFFECTIVE [None]
  - MENINGIOMA [None]
  - MENINGIOMA MALIGNANT [None]
  - PHARMACEUTICAL PRODUCT COMPLAINT [None]
  - POLYURIA [None]
  - URINARY INCONTINENCE [None]
  - WEIGHT DECREASED [None]
